FAERS Safety Report 8586778-4 (Version None)
Quarter: 2012Q3

REPORT INFORMATION
  Report Type: 
  Country: None (occurrence: None)
  Receive Date: 20120810
  Receipt Date: 20120803
  Transmission Date: 20120928
  Serious: Yes (Other)
  Sender: FDA-Public Use
  Company Number: IT-ELI_LILLY_AND_COMPANY-IT201207003072

PATIENT
  Sex: Male

DRUGS (7)
  1. ATORVASTATIN [Concomitant]
     Dosage: 40 MG, QD
     Route: 048
  2. ASPIRIN [Concomitant]
     Dosage: 100 MG, UNKNOWN
     Route: 065
  3. CHOLECALCIFEROL [Concomitant]
     Dosage: 25000 IU, UNKNOWN
     Route: 048
  4. EFFIENT [Suspect]
     Dosage: 5 MG, QD
     Route: 048
     Dates: start: 20120307, end: 20120709
  5. ALENDRONATO SODICO [Concomitant]
     Dosage: 70 MG, WEEKLY (1/W)
     Dates: start: 20120310, end: 20120709
  6. ATORVASTATIN [Concomitant]
     Dosage: 40 MG, QD
     Route: 048
     Dates: start: 20120307, end: 20120709
  7. EFFIENT [Suspect]
     Dosage: 5 MG, QD
     Route: 048

REACTIONS (1)
  - CONVULSION [None]
